FAERS Safety Report 10015105 (Version 4)
Quarter: 2016Q4

REPORT INFORMATION
  Report Type: Spontaneous
  Country: JP (occurrence: JP)
  Receive Date: 20140317
  Receipt Date: 20161123
  Transmission Date: 20170206
  Serious: Yes (Death, Other)
  Sender: FDA-Public Use
  Company Number: JP-PFIZER INC-2014072701

PATIENT
  Age: 43 Year
  Sex: Female
  Weight: 79 kg

DRUGS (2)
  1. DOXAZOSIN MESILATE [Suspect]
     Active Substance: DOXAZOSIN MESYLATE
     Dosage: 42 MG, DAILY
     Route: 048
  2. AMLODIPINE BESILATE [Suspect]
     Active Substance: AMLODIPINE BESYLATE
     Dosage: 1070 MG, DAILY
     Route: 048

REACTIONS (5)
  - Completed suicide [Fatal]
  - Multiple organ dysfunction syndrome [Fatal]
  - Hypotension [Unknown]
  - Intentional overdose [Fatal]
  - Gastrointestinal necrosis [Fatal]
